FAERS Safety Report 20227074 (Version 1)
Quarter: 2021Q4

REPORT INFORMATION
  Report Type: Spontaneous
  Country: MY (occurrence: MY)
  Receive Date: 20211224
  Receipt Date: 20211224
  Transmission Date: 20220303
  Serious: Yes (Other)
  Sender: FDA-Public Use
  Company Number: MY-NOVARTISPH-NVSC2021MY289940

PATIENT
  Age: 45 Year
  Sex: Female

DRUGS (2)
  1. ELTROMBOPAG [Suspect]
     Active Substance: ELTROMBOPAG
     Indication: Product used for unknown indication
     Dosage: 25 MG, QD
     Route: 065
  2. ELTROMBOPAG [Suspect]
     Active Substance: ELTROMBOPAG
     Dosage: 25 MG, QOD
     Route: 065
     Dates: start: 202108

REACTIONS (3)
  - Blood bilirubin abnormal [Unknown]
  - Platelet count increased [Unknown]
  - Alanine aminotransferase abnormal [Unknown]
